FAERS Safety Report 11936922 (Version 3)
Quarter: 2016Q1

REPORT INFORMATION
  Report Type: Report from Study
  Country: BR (occurrence: BR)
  Receive Date: 20160121
  Receipt Date: 20160201
  Transmission Date: 20160526
  Serious: Yes (Hospitalization, Other)
  Sender: FDA-Public Use
  Company Number: BR-ABBVIE-16K-020-1540061-00

PATIENT
  Age: 35 Year
  Sex: Male
  Weight: 62 kg

DRUGS (6)
  1. HUMIRA [Suspect]
     Active Substance: ADALIMUMAB
     Route: 058
     Dates: start: 2015
  2. MESALAZINE [Concomitant]
     Active Substance: MESALAMINE
     Indication: INFLAMMATION
     Route: 048
  3. AZATHIOPRINE. [Concomitant]
     Active Substance: AZATHIOPRINE
     Indication: PRODUCT USED FOR UNKNOWN INDICATION
  4. HUMIRA [Suspect]
     Active Substance: ADALIMUMAB
     Dosage: INDUCTION DOSE, WEEK TWO
     Route: 058
     Dates: start: 201507, end: 201507
  5. INSULIN [Concomitant]
     Active Substance: INSULIN NOS
     Indication: PRODUCT USED FOR UNKNOWN INDICATION
  6. HUMIRA [Suspect]
     Active Substance: ADALIMUMAB
     Indication: CROHN^S DISEASE
     Dosage: INDUCTION DOSE, WEEK ZERO
     Route: 058
     Dates: start: 20150706, end: 20150706

REACTIONS (5)
  - Crohn^s disease [Recovered/Resolved]
  - Crohn^s disease [Unknown]
  - Stress [Unknown]
  - Drug ineffective [Unknown]
  - Frequent bowel movements [Unknown]

NARRATIVE: CASE EVENT DATE: 20151212
